FAERS Safety Report 9886753 (Version 1)
Quarter: 2014Q1

REPORT INFORMATION
  Report Type: Spontaneous
  Country: MX (occurrence: MX)
  Receive Date: 20140210
  Receipt Date: 20140210
  Transmission Date: 20141002
  Serious: Yes (Hospitalization, Other)
  Sender: FDA-Public Use
  Company Number: PHHY2014MX016252

PATIENT
  Age: 73 Year
  Sex: Male

DRUGS (1)
  1. EXELON PATCH [Suspect]
     Indication: SENILE DEMENTIA
     Dosage: 4.6 MG, UNK (5 CM PATCH)
     Route: 062
     Dates: start: 201401

REACTIONS (1)
  - Gastrointestinal infection [Not Recovered/Not Resolved]
